FAERS Safety Report 9290870 (Version 1)
Quarter: 2013Q2

REPORT INFORMATION
  Report Type: Spontaneous
  Country: US (occurrence: None)
  Receive Date: 20130514
  Receipt Date: 20130514
  Transmission Date: 20140414
  Serious: Yes (Other)
  Sender: FDA-Public Use
  Company Number: None

PATIENT
  Sex: 0

DRUGS (2)
  1. AMPHETAMINE [Suspect]
     Indication: ATTENTION DEFICIT/HYPERACTIVITY DISORDER
     Dosage: ONE IN MORNING
     Route: 048
     Dates: start: 20130403, end: 20130428
  2. AMPHETAMINE [Suspect]
     Indication: ATTENTION DEFICIT/HYPERACTIVITY DISORDER
     Dosage: ONE AT NOON
     Route: 048
     Dates: start: 20130403, end: 20130428

REACTIONS (10)
  - Product substitution issue [None]
  - Product quality issue [None]
  - Irritability [None]
  - Asthenia [None]
  - Sensation of heaviness [None]
  - Fatigue [None]
  - Disturbance in attention [None]
  - Depressed level of consciousness [None]
  - Headache [None]
  - Product substitution issue [None]
